FAERS Safety Report 4646897-1 (Version None)
Quarter: 2005Q2

REPORT INFORMATION
  Report Type: 
  Country: None (occurrence: None)
  Receive Date: 20050331
  Receipt Date: 20050216
  Transmission Date: 20051028
  Serious: No
  Sender: FDA-Public Use
  Company Number: 05P-163-0290935-00

PATIENT
  Age: 54 Year
  Sex: Female
  Weight: 91 kg

DRUGS (8)
  1. HUMIRA [Suspect]
     Indication: RHEUMATOID ARTHRITIS
     Dosage: 40 MG, 1 IN 2 WK, SUBCUTANEOUS
     Route: 058
     Dates: start: 20040701
  2. METHOTREXATE [Concomitant]
  3. FOLIC ACID [Concomitant]
  4. DYAZIDE [Concomitant]
  5. ATENOLOL [Concomitant]
  6. CALCIUM + D [Concomitant]
  7. RANITIDINE HYDROCHLORIDE [Concomitant]
  8. ASPIRIN [Concomitant]

REACTIONS (2)
  - BACK INJURY [None]
  - INFLUENZA [None]
